FAERS Safety Report 8536979-6 (Version None)
Quarter: 2012Q3

REPORT INFORMATION
  Report Type: 
  Country: None (occurrence: None)
  Receive Date: 20120725
  Receipt Date: 20120716
  Transmission Date: 20120928
  Serious: Yes (Hospitalization)
  Sender: FDA-Public Use
  Company Number: AT-ABBOTT-12P-009-0952978-00

PATIENT
  Sex: Male
  Weight: 50 kg

DRUGS (17)
  1. SEVELAMER [Suspect]
     Indication: HYPERPHOSPHATAEMIA
     Route: 048
     Dates: start: 20110307, end: 20120607
  2. LASIX [Concomitant]
     Indication: PRODUCT USED FOR UNKNOWN INDICATION
     Route: 048
     Dates: start: 20090307
  3. ZEMPLAR [Suspect]
     Dosage: 3 X 4 CAPS/WEEK (MONDAY, WEDNESDAY,FRIDAY)
     Dates: start: 20120423, end: 20120704
  4. CARVEDILOL [Concomitant]
     Indication: CARDIAC FAILURE
     Route: 048
     Dates: start: 20100517
  5. MAXI KALZ [Concomitant]
     Indication: PRODUCT USED FOR UNKNOWN INDICATION
     Dosage: 1-1-1
  6. AEROMUC [Concomitant]
     Indication: PRODUCT USED FOR UNKNOWN INDICATION
     Dosage: 1-0-0
  7. CARVEDILOL [Concomitant]
     Indication: PRODUCT USED FOR UNKNOWN INDICATION
     Dosage: 1-0-1
  8. CALC ACET [Concomitant]
     Indication: HYPERPHOSPHATAEMIA
     Route: 048
     Dates: start: 20090307
  9. CALCITRIOL [Concomitant]
     Indication: HYPERPARATHYROIDISM
     Route: 048
     Dates: start: 20060322
  10. CPS [Concomitant]
     Indication: PRODUCT USED FOR UNKNOWN INDICATION
     Dosage: 0-1-0
  11. RENVELA [Concomitant]
     Indication: PRODUCT USED FOR UNKNOWN INDICATION
     Dosage: 1-1-1
  12. ERYPO [Concomitant]
     Indication: PRODUCT USED FOR UNKNOWN INDICATION
     Dosage: 1000 E ON MONDAYS
  13. ZEMPLAR [Suspect]
     Indication: HYPERPARATHYROIDISM
     Dosage: 2 X 2 CPS PER WEEK
     Dates: start: 20120206, end: 20120423
  14. FOLSAN [Concomitant]
     Indication: PRODUCT USED FOR UNKNOWN INDICATION
     Dosage: 1-0-0
  15. ROCALTROL [Concomitant]
     Indication: HYPERPARATHYROIDISM
     Route: 048
     Dates: start: 20060322
  16. SPASMOLYT DRAGEES [Concomitant]
     Indication: PRODUCT USED FOR UNKNOWN INDICATION
     Dosage: 1-0-1
  17. FERRLECIT [Concomitant]
     Indication: PRODUCT USED FOR UNKNOWN INDICATION
     Dosage: MONDAY

REACTIONS (12)
  - EMPHYSEMA [None]
  - GENERAL PHYSICAL HEALTH DETERIORATION [None]
  - DIARRHOEA [None]
  - HYPOCALCAEMIA [None]
  - DECREASED APPETITE [None]
  - URINARY RETENTION [None]
  - ARRHYTHMIA [None]
  - HYPERPHOSPHATAEMIA [None]
  - DYSPNOEA EXERTIONAL [None]
  - BREATH SOUNDS ABNORMAL [None]
  - WHEEZING [None]
  - SPLENIC CALCIFICATION [None]
